FAERS Safety Report 7278031-6 (Version None)
Quarter: 2011Q1

REPORT INFORMATION
  Report Type: 
  Country: None (occurrence: None)
  Receive Date: 20110207
  Receipt Date: 20110202
  Transmission Date: 20110831
  Serious: Yes (Death)
  Sender: FDA-Public Use
  Company Number: JP-SANOFI-AVENTIS-2011SA007077

PATIENT
  Age: 80 Year
  Sex: Male

DRUGS (1)
  1. TAXOTERE [Suspect]
     Indication: CHEMOTHERAPY
     Dosage: 60-65 MG/M2
     Route: 041
     Dates: start: 20110120, end: 20110120

REACTIONS (1)
  - INTERSTITIAL LUNG DISEASE [None]
